FAERS Safety Report 8368247-X (Version None)
Quarter: 2012Q2

REPORT INFORMATION
  Report Type: 
  Country: None (occurrence: None)
  Receive Date: 20120517
  Receipt Date: 20120509
  Transmission Date: 20120825
  Serious: Yes (Disabling, Other)
  Sender: FDA-Public Use
  Company Number: US-MERCK-1201USA03451

PATIENT
  Age: 62 Year
  Sex: Female
  Weight: 56 kg

DRUGS (3)
  1. FOSAMAX [Suspect]
     Route: 048
     Dates: start: 20030101, end: 20110522
  2. FOSAMAX [Suspect]
     Route: 048
     Dates: start: 20080301
  3. FOSAMAX [Suspect]
     Indication: OSTEOPOROSIS
     Route: 048
     Dates: start: 19950101, end: 20030101

REACTIONS (8)
  - BLOOD CHOLESTEROL INCREASED [None]
  - OSTEOMYELITIS [None]
  - BLADDER CANCER [None]
  - SINUSITIS [None]
  - NASAL SEPTUM DEVIATION [None]
  - SINUS DISORDER [None]
  - OSTEOPENIA [None]
  - OSTEONECROSIS OF JAW [None]
